FAERS Safety Report 4452028-3 (Version None)
Quarter: 2004Q3

REPORT INFORMATION
  Report Type: 
  Country: None (occurrence: None)
  Receive Date: 20040813
  Receipt Date: 20040419
  Transmission Date: 20050211
  Serious: No
  Sender: FDA-Public Use
  Company Number: S04-USA-03519-01

PATIENT
  Age: 83 Year
  Sex: Female

DRUGS (6)
  1. NAMENDA [Suspect]
     Indication: DEMENTIA ALZHEIMER'S TYPE
     Dosage: 5 MG QD PO
     Route: 048
     Dates: start: 20040419
  2. NORVASC [Concomitant]
  3. SYNTHROID [Concomitant]
  4. MIRTAZAPINE [Concomitant]
  5. ASPIRIN [Concomitant]
  6. MIACALCIN (CALCITONIN, SLAMON) [Concomitant]

REACTIONS (2)
  - NAUSEA [None]
  - VOMITING [None]
